FAERS Safety Report 15058811 (Version 1)
Quarter: 2018Q2

REPORT INFORMATION
  Report Type: Spontaneous
  Country: JP (occurrence: JP)
  Receive Date: 20180625
  Receipt Date: 20180625
  Transmission Date: 20180711
  Serious: Yes (Life-Threatening, Hospitalization)
  Sender: FDA-Public Use
  Company Number: JP-TEVA-2018-JP-913704

PATIENT
  Age: 57 Year
  Sex: Female

DRUGS (1)
  1. CISPLATIN. [Suspect]
     Active Substance: CISPLATIN
     Indication: CERVIX CARCINOMA
     Route: 065

REACTIONS (7)
  - Reversible cerebral vasoconstriction syndrome [Recovered/Resolved]
  - Cerebral infarction [Recovered/Resolved]
  - Hypocalcaemia [Recovered/Resolved]
  - Hemianopia [Not Recovered/Not Resolved]
  - Renal impairment [Recovered/Resolved]
  - Hypomagnesaemia [Recovered/Resolved]
  - Renal tubular injury [Recovered/Resolved]
